FAERS Safety Report 8557423-9 (Version None)
Quarter: 2012Q3

REPORT INFORMATION
  Report Type: 
  Country: None (occurrence: None)
  Receive Date: 20120801
  Receipt Date: 20120726
  Transmission Date: 20120928
  Serious: Yes (Hospitalization, Other)
  Sender: FDA-Public Use
  Company Number: US-ELI_LILLY_AND_COMPANY-US201205000306

PATIENT
  Age: 44 Year
  Sex: Male
  Weight: 95 kg

DRUGS (2)
  1. TESTOSTERONE [Concomitant]
  2. AXIRON [Suspect]
     Indication: HYPOPITUITARISM
     Dosage: 60 MG, QD
     Route: 062
     Dates: start: 20120112, end: 20120120

REACTIONS (1)
  - DEEP VEIN THROMBOSIS [None]
